FAERS Safety Report 19169558 (Version 1)
Quarter: 2021Q2

REPORT INFORMATION
  Report Type: Spontaneous
  Country: US (occurrence: US)
  Receive Date: 20210422
  Receipt Date: 20210422
  Transmission Date: 20210717
  Serious: No
  Sender: FDA-Public Use
  Company Number: US-PFIZER INC-2021328569

PATIENT
  Age: 58 Year
  Sex: Female

DRUGS (1)
  1. GENOTROPIN MQ [Suspect]
     Active Substance: SOMATROPIN
     Dosage: 0.2 MG, DAILY

REACTIONS (16)
  - Disturbance in attention [Unknown]
  - Dizziness [Unknown]
  - Headache [Unknown]
  - Muscle spasms [Unknown]
  - Alopecia [Unknown]
  - Empty sella syndrome [Unknown]
  - Fatigue [Unknown]
  - Feeling abnormal [Unknown]
  - Depressed mood [Unknown]
  - Weight increased [Unknown]
  - Mood swings [Unknown]
  - Anxiety [Unknown]
  - Feeling of body temperature change [Unknown]
  - Confusional state [Unknown]
  - Malaise [Unknown]
  - Palpitations [Unknown]

NARRATIVE: CASE EVENT DATE: 20200220
